FAERS Safety Report 13080151 (Version 1)
Quarter: 2017Q1

REPORT INFORMATION
  Report Type: Spontaneous
  Country: FR (occurrence: FR)
  Receive Date: 20170103
  Receipt Date: 20170103
  Transmission Date: 20170428
  Serious: Yes (Hospitalization, Other)
  Sender: FDA-Public Use
  Company Number: FR-VIIV HEALTHCARE LIMITED-FR2016GSK192245

PATIENT
  Age: 62 Year
  Sex: Female

DRUGS (3)
  1. VIREAD [Suspect]
     Active Substance: TENOFOVIR DISOPROXIL FUMARATE
     Indication: HEPATITIS B VIRUS TEST POSITIVE
     Dosage: 245 MG, UNK
     Route: 048
     Dates: end: 20161205
  2. ZEFFIX [Suspect]
     Active Substance: LAMIVUDINE
     Indication: HEPATITIS B VIRUS TEST POSITIVE
     Dosage: UNK
     Route: 048
     Dates: end: 20161205
  3. FENOFIBRATE. [Suspect]
     Active Substance: FENOFIBRATE
     Indication: HYPERTRIGLYCERIDAEMIA
     Dosage: UNK
     Route: 048
     Dates: start: 201607, end: 20161205

REACTIONS (2)
  - Rhabdomyolysis [Recovering/Resolving]
  - Acute kidney injury [Not Recovered/Not Resolved]

NARRATIVE: CASE EVENT DATE: 20161206
